FAERS Safety Report 17266266 (Version 1)
Quarter: 2020Q1

REPORT INFORMATION
  Report Type: Spontaneous
  Country: US (occurrence: US)
  Receive Date: 20200114
  Receipt Date: 20200114
  Transmission Date: 20200409
  Serious: Yes (Death, Other)
  Sender: FDA-Public Use
  Company Number: US-APOTEX-2020AP005439

PATIENT
  Age: 54 Year
  Sex: Male

DRUGS (4)
  1. ALCOHOL. [Suspect]
     Active Substance: ALCOHOL
     Dosage: UNK, UNKNOWN CHRONICITY
     Route: 065
  2. FENTANYL. [Suspect]
     Active Substance: FENTANYL
     Indication: PRODUCT USED FOR UNKNOWN INDICATION
     Dosage: UNK UNKNOWN CHRONICITY
     Route: 048
  3. FENTANYL. [Suspect]
     Active Substance: FENTANYL
     Dosage: UNK, UNKNOWN CHRONICITY
     Route: 065
  4. ALCOHOL. [Suspect]
     Active Substance: ALCOHOL
     Indication: PRODUCT USED FOR UNKNOWN INDICATION
     Dosage: UNK, UNKNOWN CHRONICITY
     Route: 048

REACTIONS (1)
  - Drug abuse [Fatal]
